FAERS Safety Report 9124024 (Version 1)
Quarter: 2013Q1

REPORT INFORMATION
  Report Type: Spontaneous
  Country: US (occurrence: US)
  Receive Date: 20130116
  Receipt Date: 20130116
  Transmission Date: 20140127
  Serious: Yes (Hospitalization)
  Sender: FDA-Public Use
  Company Number: US-BAYER-2013-004479

PATIENT
  Age: 29 Year
  Sex: Female
  Weight: 68.93 kg

DRUGS (11)
  1. YASMIN [Suspect]
     Indication: CONTRACEPTION
  2. YAZ [Suspect]
  3. ADDERALL [Concomitant]
  4. CYMBALTA [Concomitant]
     Dosage: 60 MG, UNK
     Route: 048
  5. HYDROCODONE [Concomitant]
     Dosage: 20 MG, UNK
     Route: 048
  6. METAXALONE [Concomitant]
     Dosage: 800 MG, UNK
     Route: 048
  7. OMEPRAZOLE [Concomitant]
     Dosage: 20 MG, UNK
     Route: 048
     Dates: start: 20111005, end: 20111013
  8. FLONASE [Concomitant]
     Dosage: UNK
     Dates: start: 20111005, end: 20111013
  9. VICODIN [Concomitant]
  10. DILAUDID [Concomitant]
  11. LIDOCAINE [Concomitant]

REACTIONS (1)
  - Pulmonary embolism [None]
